FAERS Safety Report 10168359 (Version 1)
Quarter: 2014Q2

REPORT INFORMATION
  Report Type: Spontaneous
  Country: US (occurrence: US)
  Receive Date: 20140513
  Receipt Date: 20140513
  Transmission Date: 20141212
  Serious: Yes (Death, Other)
  Sender: FDA-Public Use
  Company Number: PHHY2014US055292

PATIENT
  Age: 12 Year
  Sex: Male

DRUGS (6)
  1. DOXORUBICIN [Suspect]
     Indication: KAPOSI^S SARCOMA
  2. BLEOMYCIN [Suspect]
     Indication: KAPOSI^S SARCOMA
  3. VINCRISTINE [Suspect]
     Indication: KAPOSI^S SARCOMA
  4. STAVUDINE [Concomitant]
     Indication: ANTIRETROVIRAL THERAPY
  5. LAMIVUDINE [Concomitant]
     Indication: ANTIRETROVIRAL THERAPY
  6. EFAVIRENZ [Concomitant]
     Indication: ANTIRETROVIRAL THERAPY

REACTIONS (4)
  - Respiratory disorder [Fatal]
  - Drug resistance [Unknown]
  - Kaposi^s sarcoma [Unknown]
  - Malignant neoplasm progression [Unknown]
